FAERS Safety Report 18341045 (Version 1)
Quarter: 2020Q4

REPORT INFORMATION
  Report Type: Spontaneous
  Country: MT (occurrence: MT)
  Receive Date: 20201003
  Receipt Date: 20201003
  Transmission Date: 20210113
  Serious: Yes (Hospitalization, Other)
  Sender: FDA-Public Use
  Company Number: MT-SUN PHARMACEUTICAL INDUSTRIES LTD-2019R1-223433

PATIENT
  Age: 80 Year
  Sex: Female

DRUGS (5)
  1. OMEPRAZOLE. [Concomitant]
     Active Substance: OMEPRAZOLE
     Indication: HELICOBACTER INFECTION
     Dosage: 20 MILLIGRAM, BID
     Route: 065
  2. CLARITHROMYCINE [Interacting]
     Active Substance: CLARITHROMYCIN
     Indication: HELICOBACTER INFECTION
     Dosage: 500 MILLIGRAM, BID
     Route: 065
  3. AMOXICILLIN. [Concomitant]
     Active Substance: AMOXICILLIN
     Indication: HELICOBACTER INFECTION
     Dosage: 1 GRAM, BID
     Route: 065
  4. WARFARIN [Concomitant]
     Active Substance: WARFARIN
     Indication: PRODUCT USED FOR UNKNOWN INDICATION
     Dosage: UNK
     Route: 065
  5. DIGOXIN. [Suspect]
     Active Substance: DIGOXIN
     Indication: HEART RATE IRREGULAR
     Dosage: 0.125 MILLIGRAM, DAILY
     Route: 065

REACTIONS (11)
  - Toxicity to various agents [Unknown]
  - Hyperkalaemia [Unknown]
  - Drug level increased [Unknown]
  - Tachycardia [Unknown]
  - Acute kidney injury [Unknown]
  - Nausea [Unknown]
  - Vision blurred [Unknown]
  - Drug interaction [Unknown]
  - Dizziness [Unknown]
  - Hyperhidrosis [Unknown]
  - Epigastric discomfort [Unknown]
